FAERS Safety Report 4935786-0 (Version None)
Quarter: 2006Q1

REPORT INFORMATION
  Report Type: 
  Country: None (occurrence: None)
  Receive Date: 20060307
  Receipt Date: 20051212
  Transmission Date: 20060701
  Serious: No
  Sender: FDA-Public Use
  Company Number: US-GLAXOSMITHKLINE-A0585542A

PATIENT
  Age: 76 Year
  Sex: Female
  Weight: 66.4 kg

DRUGS (8)
  1. REQUIP [Suspect]
     Indication: RESTLESS LEGS SYNDROME
     Route: 048
     Dates: start: 20040101, end: 20040101
  2. SINEMET [Concomitant]
  3. NEURONTIN [Concomitant]
  4. PRAVACHOL [Concomitant]
  5. FOSAMAX [Concomitant]
  6. TAMOXIFEN CITRATE [Concomitant]
     Route: 065
  7. PREVACID [Concomitant]
  8. DARVOCET [Concomitant]

REACTIONS (2)
  - DRUG INEFFECTIVE [None]
  - INSOMNIA [None]
